FAERS Safety Report 10518880 (Version 2)
Quarter: 2014Q4

REPORT INFORMATION
  Report Type: Report from Study
  Country: UA (occurrence: UA)
  Receive Date: 20141015
  Receipt Date: 20141215
  Transmission Date: 20150528
  Serious: Yes (Death)
  Sender: FDA-Public Use
  Company Number: UA-JNJFOC-20141008282

PATIENT
  Sex: Male
  Weight: 120 kg

DRUGS (19)
  1. XARELTO [Suspect]
     Active Substance: RIVAROXABAN
     Indication: ATRIAL FIBRILLATION
     Route: 048
     Dates: start: 20130917, end: 20140825
  2. LEVOFLOXACIN. [Concomitant]
     Active Substance: LEVOFLOXACIN
     Route: 065
     Dates: start: 20140428, end: 20140505
  3. VEROSPIRON [Concomitant]
     Active Substance: SPIRONOLACTONE
     Route: 065
     Dates: start: 20130917
  4. FUROSEMID [Concomitant]
     Active Substance: FUROSEMIDE
     Route: 065
     Dates: start: 20140428, end: 20140505
  5. XARELTO [Suspect]
     Active Substance: RIVAROXABAN
     Indication: THROMBOSIS PROPHYLAXIS
     Route: 048
     Dates: start: 20130917, end: 20140825
  6. PRESTARIUM [Concomitant]
     Active Substance: PERINDOPRIL
     Route: 065
     Dates: start: 20130401
  7. NIMESULIDE [Concomitant]
     Active Substance: NIMESULIDE
     Route: 065
     Dates: start: 20140514, end: 20140520
  8. THEOPHYLLIN [Concomitant]
     Active Substance: THEOPHYLLINE ANHYDROUS
     Route: 065
     Dates: start: 20140428, end: 20140505
  9. CEFTRIAXONA [Concomitant]
     Active Substance: CEFTRIAXONE
     Route: 065
     Dates: start: 20140428, end: 20140505
  10. FUROSEMID [Concomitant]
     Active Substance: FUROSEMIDE
     Route: 065
     Dates: start: 20130917
  11. XARELTO [Suspect]
     Active Substance: RIVAROXABAN
     Indication: CEREBROVASCULAR ACCIDENT PROPHYLAXIS
     Route: 048
     Dates: start: 20130917, end: 20140825
  12. AMBROXOL [Concomitant]
     Active Substance: AMBROXOL
     Route: 065
     Dates: start: 20140320
  13. CONCOR [Concomitant]
     Active Substance: BISOPROLOL FUMARATE
     Route: 065
     Dates: start: 20130401
  14. NITROSORBIDE [Concomitant]
     Route: 065
     Dates: start: 20140311, end: 20140314
  15. VEROSPIRON [Concomitant]
     Active Substance: SPIRONOLACTONE
     Route: 065
     Dates: start: 20130401, end: 20130916
  16. DIABETON MR [Concomitant]
     Route: 065
     Dates: start: 20130920
  17. MANINIL [Concomitant]
     Route: 065
     Dates: start: 2012, end: 20130919
  18. ETAMSILATE [Concomitant]
     Route: 065
     Dates: start: 20140825, end: 20140829
  19. FUROSEMID [Concomitant]
     Active Substance: FUROSEMIDE
     Route: 065
     Dates: start: 20140307, end: 20140321

REACTIONS (1)
  - Death [Fatal]
